FAERS Safety Report 20682118 (Version 1)
Quarter: 2022Q2

REPORT INFORMATION
  Report Type: Spontaneous
  Country: US (occurrence: US)
  Receive Date: 20220407
  Receipt Date: 20220407
  Transmission Date: 20220721
  Serious: Yes (Hospitalization, Other)
  Sender: FDA-Public Use
  Company Number: US-CIPLA LTD.-2022US02042

PATIENT

DRUGS (1)
  1. HYDRALAZINE [Suspect]
     Active Substance: HYDRALAZINE HYDROCHLORIDE
     Indication: Hypertension
     Dosage: UNK
     Route: 065

REACTIONS (9)
  - Cardiac arrest [Recovering/Resolving]
  - Autoimmune myocarditis [Recovering/Resolving]
  - Anti-neutrophil cytoplasmic antibody positive vasculitis [Recovering/Resolving]
  - Ventricular fibrillation [Recovering/Resolving]
  - Acute respiratory failure [Recovering/Resolving]
  - Pulmonary alveolar haemorrhage [Recovering/Resolving]
  - Pneumonitis [Recovering/Resolving]
  - Renal failure [Recovering/Resolving]
  - Glomerulonephritis rapidly progressive [Recovering/Resolving]
